FAERS Safety Report 4673763-8 (Version None)
Quarter: 2005Q2

REPORT INFORMATION
  Report Type: 
  Country: None (occurrence: None)
  Receive Date: 20050524
  Receipt Date: 20050513
  Transmission Date: 20051028
  Serious: Yes (Hospitalization)
  Sender: FDA-Public Use
  Company Number: 11132

PATIENT
  Age: 80 Year
  Sex: Female

DRUGS (11)
  1. ACYCLOVIR [Suspect]
     Indication: HERPES VIRUS INFECTION
     Dosage: 200 MG OTH
     Route: 048
     Dates: start: 20050403, end: 20050420
  2. TRIMETHOPRIM [Concomitant]
  3. FUSIDIC ACID [Concomitant]
  4. ALENDRONIC ACID [Concomitant]
  5. AMLODIPINE [Concomitant]
  6. MISOPROSTOL/DICLOFENAC [Concomitant]
  7. ISOSORBIDE MONONITRATE [Concomitant]
  8. CLOPIDOGREL [Concomitant]
  9. SIMVASTATIN [Concomitant]
  10. TOLTERODINE [Concomitant]
  11. MIRTAZAPINE [Suspect]

REACTIONS (1)
  - RENAL IMPAIRMENT [None]
